FAERS Safety Report 7153065-0 (Version None)
Quarter: 2010Q4

REPORT INFORMATION
  Report Type: 
  Country: None (occurrence: None)
  Receive Date: 20101213
  Receipt Date: 20101201
  Transmission Date: 20110411
  Serious: Yes (Hospitalization, Other)
  Sender: FDA-Public Use
  Company Number: JP-GENZYME-RENA-1000949

PATIENT
  Age: 75 Year
  Sex: Male

DRUGS (4)
  1. RENAGEL [Suspect]
     Indication: HYPERPHOSPHATAEMIA
     Route: 048
  2. RENAGEL [Suspect]
     Indication: HYPERKALAEMIA
  3. CALCIUM POLYSTYRENE SULFONATE [Suspect]
     Indication: HYPERKALAEMIA
     Route: 048
  4. CALCIUM POLYSTYRENE SULFONATE [Suspect]
     Indication: HYPERPHOSPHATAEMIA

REACTIONS (2)
  - FEMUR FRACTURE [None]
  - LARGE INTESTINE PERFORATION [None]
